FAERS Safety Report 5734594-0 (Version None)
Quarter: 2008Q2

REPORT INFORMATION
  Report Type: 
  Country: None (occurrence: None)
  Receive Date: 20080508
  Receipt Date: 20080508
  Transmission Date: 20081010
  Serious: No
  Sender: FDA-Public Use
  Company Number: None

PATIENT
  Age: 26 Year
  Sex: Female
  Weight: 63.5036 kg

DRUGS (1)
  1. CREST PROHEALTH MOUTHWASH 500ML PROCTER AND GAMBLE [Suspect]
     Dosage: 3-4 TEASPOONS ONCE DAILY
     Dates: start: 20071215, end: 20080414

REACTIONS (2)
  - PHARMACEUTICAL PRODUCT COMPLAINT [None]
  - TOOTH DISCOLOURATION [None]
